FAERS Safety Report 25594528 (Version 1)
Quarter: 2025Q3

REPORT INFORMATION
  Report Type: Spontaneous
  Country: GB (occurrence: GB)
  Receive Date: 20250723
  Receipt Date: 20250723
  Transmission Date: 20251020
  Serious: Yes (Other)
  Sender: AUROBINDO
  Company Number: GB-MHRA-MED-202507100718013060-BPCFN

PATIENT
  Sex: Female

DRUGS (1)
  1. NITROFURANTOIN [Suspect]
     Active Substance: NITROFURANTOIN
     Indication: Product used for unknown indication
     Dosage: 100 MILLIGRAM, TWO TIMES A DAY (100MG ONE TWICE DAILY)
     Route: 065
     Dates: start: 20250708, end: 20250708

REACTIONS (5)
  - Respiratory tract irritation [Recovering/Resolving]
  - Tachycardia [Recovering/Resolving]
  - Respiratory rate increased [Recovering/Resolving]
  - Chills [Recovered/Resolved]
  - Nausea [Recovered/Resolved]

NARRATIVE: CASE EVENT DATE: 20250708
